FAERS Safety Report 14030972 (Version 1)
Quarter: 2017Q4

REPORT INFORMATION
  Report Type: Spontaneous
  Country: GB (occurrence: GB)
  Receive Date: 20171002
  Receipt Date: 20171002
  Transmission Date: 20180321
  Serious: Yes (Other)
  Sender: FDA-Public Use
  Company Number: GB-DEPOMED, INC.-GB-2017DEP001869

PATIENT
  Age: 32 Year
  Sex: Female

DRUGS (5)
  1. NITROUS OXIDE. [Suspect]
     Active Substance: NITROUS OXIDE
     Indication: ANAESTHESIA
     Dosage: UNK
  2. THIOPENTAL [Suspect]
     Active Substance: THIOPENTAL
     Indication: ANAESTHESIA
     Dosage: UNK
  3. SUXAMETHONIUM [Suspect]
     Active Substance: SUCCINYLCHOLINE
     Indication: ANAESTHESIA
     Dosage: UNK
  4. FENTANYL. [Suspect]
     Active Substance: FENTANYL
     Indication: ANAESTHESIA
     Dosage: UNK
  5. ISOFLURANE. [Suspect]
     Active Substance: ISOFLURANE
     Indication: ANAESTHESIA
     Dosage: UNK

REACTIONS (1)
  - Uterine atony [Recovered/Resolved]
